FAERS Safety Report 10155819 (Version 2)
Quarter: 2014Q2

REPORT INFORMATION
  Report Type: Spontaneous
  Country: US (occurrence: US)
  Receive Date: 20140506
  Receipt Date: 20140603
  Transmission Date: 20141212
  Serious: Yes (Other)
  Sender: FDA-Public Use
  Company Number: US-PURDUE-USA-2014-0113463

PATIENT
  Age: 30 Year
  Sex: Female

DRUGS (2)
  1. OXYCONTIN (NDA 22-272) [Suspect]
     Indication: SPINAL PAIN
     Dosage: 40 MG, TID
     Route: 048
     Dates: start: 201302
  2. OXYCONTIN (NDA 22-272) [Suspect]
     Indication: CARPAL TUNNEL SYNDROME
     Dosage: 20 MG, TID
     Route: 048

REACTIONS (1)
  - Carpal tunnel syndrome [Unknown]
